FAERS Safety Report 10774560 (Version 2)
Quarter: 2015Q1

REPORT INFORMATION
  Report Type: Spontaneous
  Country: FI (occurrence: None)
  Receive Date: 20150128
  Receipt Date: 20150209
  Transmission Date: 20150721
  Serious: Yes (Other)
  Sender: FDA-Public Use
  Company Number: GAM-011-15-FI

PATIENT

DRUGS (1)
  1. OCTAGAM IMMUNE GLOBULIN (HUMAN) [Suspect]
     Active Substance: HUMAN IMMUNOGLOBULIN G
     Indication: RADICULITIS
     Dosage: 25 G (2X 5/CYCLICAL)
     Dates: start: 20141206, end: 20150104

REACTIONS (4)
  - Campylobacter test positive [None]
  - Suspected transmission of an infectious agent via product [None]
  - Brucella test positive [None]
  - Leptospira test positive [None]

NARRATIVE: CASE EVENT DATE: 201412
